FAERS Safety Report 20646625 (Version 8)
Quarter: 2023Q1

REPORT INFORMATION
  Report Type: Spontaneous
  Country: PT (occurrence: PT)
  Receive Date: 20220329
  Receipt Date: 20230116
  Transmission Date: 20230418
  Serious: Yes (Hospitalization, Other)
  Sender: FDA-Public Use
  Company Number: PT-AUROBINDO-AUR-APL-2022-009438

PATIENT
  Age: 82 Year
  Sex: Female

DRUGS (5)
  1. INDAPAMIDE [Interacting]
     Active Substance: INDAPAMIDE
     Indication: Type 2 diabetes mellitus
     Dosage: 1.5 MILLIGRAM, ONCE A DAY
     Route: 065
  2. METFORMIN [Interacting]
     Active Substance: METFORMIN HYDROCHLORIDE
     Indication: Type 2 diabetes mellitus
     Dosage: 1000 MILLIGRAM, TWO TIMES A DAY/
     Route: 048
  3. ROSUVASTATIN [Interacting]
     Active Substance: ROSUVASTATIN
     Indication: Product used for unknown indication
     Dosage: 10 MILLIGRAM, ONCE A DAY
     Route: 065
  4. SITAGLIPTIN [Interacting]
     Active Substance: SITAGLIPTIN
     Indication: Type 2 diabetes mellitus
     Dosage: 100 MILLIGRAM, ONCE A DAY
     Route: 065
  5. EMPAGLIFLOZIN [Interacting]
     Active Substance: EMPAGLIFLOZIN
     Indication: Type 2 diabetes mellitus
     Dosage: 25 MILLIGRAM, ONCE A DAY
     Route: 065

REACTIONS (16)
  - Normochromic normocytic anaemia [Recovered/Resolved]
  - Euglycaemic diabetic ketoacidosis [Recovered/Resolved]
  - Drug interaction [Recovered/Resolved]
  - Oliguria [Recovered/Resolved]
  - Ketoacidosis [Recovered/Resolved]
  - Vomiting [Recovered/Resolved]
  - Acetonaemia [Recovered/Resolved]
  - Blood lactic acid increased [Recovered/Resolved]
  - Nausea [Recovered/Resolved]
  - Diabetic ketoacidosis [Recovering/Resolving]
  - Breast cancer [Unknown]
  - Decreased appetite [Unknown]
  - Dehydration [Unknown]
  - Pallor [Unknown]
  - Dry skin [Unknown]
  - Dysphagia [Unknown]
